FAERS Safety Report 6437065-1 (Version None)
Quarter: 2009Q4

REPORT INFORMATION
  Report Type: 
  Country: None (occurrence: None)
  Receive Date: 20091112
  Receipt Date: 20091105
  Transmission Date: 20100525
  Serious: Yes (Disabling)
  Sender: FDA-Public Use
  Company Number: GB-JNJFOC-20090609308

PATIENT
  Sex: Female
  Weight: 70 kg

DRUGS (5)
  1. RISPERDAL CONSTA [Suspect]
     Route: 030
     Dates: start: 20080901, end: 20090801
  2. RISPERDAL CONSTA [Suspect]
     Route: 030
     Dates: start: 20080901, end: 20090801
  3. RISPERDAL CONSTA [Suspect]
     Indication: SCHIZOPHRENIA
     Route: 030
     Dates: start: 20080901, end: 20090801
  4. KALETRA [Concomitant]
     Indication: DRUG USE FOR UNKNOWN INDICATION
     Route: 048
     Dates: start: 20090301
  5. KIVEXA [Concomitant]
     Indication: DRUG USE FOR UNKNOWN INDICATION
     Route: 048
     Dates: start: 20090301

REACTIONS (6)
  - ATRIOVENTRICULAR BLOCK FIRST DEGREE [None]
  - DRUG INEFFECTIVE [None]
  - DYSPNOEA [None]
  - GAIT DISTURBANCE [None]
  - JOINT STIFFNESS [None]
  - MUSCULOSKELETAL STIFFNESS [None]
